FAERS Safety Report 18655786 (Version 1)
Quarter: 2020Q4

REPORT INFORMATION
  Report Type: Spontaneous
  Country: GB (occurrence: GB)
  Receive Date: 20201223
  Receipt Date: 20201223
  Transmission Date: 20210114
  Serious: Yes (Other)
  Sender: FDA-Public Use
  Company Number: GB-TEVA-2020-GB-1860467

PATIENT
  Age: 61 Year
  Sex: Male
  Weight: 103 kg

DRUGS (2)
  1. TERBINAFINE. [Concomitant]
     Active Substance: TERBINAFINE
     Indication: TINEA INFECTION
  2. METHOTREXATE. [Suspect]
     Active Substance: METHOTREXATE
     Indication: ECZEMA
     Dosage: VARIED - TITRATED UP TO 22.5MG WEEKLY REDUCED TO 15MG WEEKLY.
     Route: 058
     Dates: start: 20190202, end: 20201113

REACTIONS (3)
  - Hepatic steatosis [Unknown]
  - Hepatic fibrosis [Unknown]
  - Liver injury [Unknown]

NARRATIVE: CASE EVENT DATE: 20200202
